FAERS Safety Report 14108330 (Version 1)
Quarter: 2017Q4

REPORT INFORMATION
  Report Type: Spontaneous
  Country: US (occurrence: US)
  Receive Date: 20171019
  Receipt Date: 20171019
  Transmission Date: 20180321
  Serious: Yes (Other)
  Sender: FDA-Public Use
  Company Number: US-009507513-1710USA008021

PATIENT
  Sex: Male

DRUGS (3)
  1. CYCLOPHOSPHAMIDE. [Suspect]
     Active Substance: CYCLOPHOSPHAMIDE
     Indication: CHEMOTHERAPY
  2. LENALIDOMIDE [Suspect]
     Active Substance: LENALIDOMIDE
  3. DEXAMETHASONE. [Suspect]
     Active Substance: DEXAMETHASONE

REACTIONS (1)
  - Myelodysplastic syndrome [Unknown]
